FAERS Safety Report 5530559-2 (Version None)
Quarter: 2007Q4

REPORT INFORMATION
  Report Type: 
  Country: None (occurrence: None)
  Receive Date: 20071130
  Receipt Date: 20071127
  Transmission Date: 20080405
  Serious: Yes (Other)
  Sender: FDA-Public Use
  Company Number: US-JNJFOC-20070900592

PATIENT
  Sex: Female

DRUGS (7)
  1. TOPAMAX [Suspect]
     Indication: MIGRAINE PROPHYLAXIS
     Route: 048
  2. ESGIC-PLUS [Interacting]
     Indication: SINUS HEADACHE
     Route: 048
  3. IMITREX [Concomitant]
     Indication: MIGRAINE
  4. INDURAL [Concomitant]
     Indication: PALPITATIONS
  5. PAXIL [Concomitant]
     Indication: ANXIETY
  6. PAXIL [Concomitant]
     Indication: DEPRESSION
  7. CYCLOBENZAPRINE HCL [Concomitant]
     Indication: MUSCLE RELAXANT THERAPY
     Route: 048

REACTIONS (6)
  - DRUG INTERACTION [None]
  - HEADACHE [None]
  - HYPERHIDROSIS [None]
  - SINUSITIS [None]
  - VISION BLURRED [None]
  - VISUAL ACUITY REDUCED [None]
